FAERS Safety Report 8011762-9 (Version None)
Quarter: 2011Q4

REPORT INFORMATION
  Report Type: 
  Country: None (occurrence: None)
  Receive Date: 20111228
  Receipt Date: 20111220
  Transmission Date: 20120403
  Serious: Yes (Other)
  Sender: FDA-Public Use
  Company Number: PHHY2011US110777

PATIENT

DRUGS (2)
  1. SIMVASTATIN [Suspect]
     Dosage: 20 MG, UNK
  2. BUPIVACAINE HCL [Interacting]
     Indication: PAIN
     Dosage: 770 MG, UNK

REACTIONS (14)
  - HEPATOTOXICITY [None]
  - FATIGUE [None]
  - DIZZINESS [None]
  - ASPARTATE AMINOTRANSFERASE INCREASED [None]
  - DRUG INTERACTION [None]
  - BLOOD ALKALINE PHOSPHATASE INCREASED [None]
  - ALANINE AMINOTRANSFERASE INCREASED [None]
  - BLOOD BILIRUBIN INCREASED [None]
  - PRURITUS [None]
  - URINE COLOUR ABNORMAL [None]
  - FAECES PALE [None]
  - HYPERHIDROSIS [None]
  - EOSINOPHIL COUNT INCREASED [None]
  - HYPOTENSION [None]
